FAERS Safety Report 22266416 (Version 2)
Quarter: 2023Q2

REPORT INFORMATION
  Report Type: Spontaneous
  Country: SG (occurrence: SG)
  Receive Date: 20230428
  Receipt Date: 20230512
  Transmission Date: 20230721
  Serious: Yes (Hospitalization, Other)
  Sender: FDA-Public Use
  Company Number: SG-TEVA-2023-SG-2880461

PATIENT
  Age: 56 Year
  Sex: Male

DRUGS (5)
  1. PREDNISOLONE [Suspect]
     Active Substance: PREDNISOLONE
     Indication: Radiation thyroiditis
     Dosage: 20 MILLIGRAM DAILY; EVERY MORNING FOR ONE WEEK FOR PRE-EXISTING LARGE GOITER , 20 MG ONCE A DAY
     Route: 048
  2. PREDNISOLONE [Suspect]
     Active Substance: PREDNISOLONE
     Indication: Goitre
     Dosage: 20 MILLIGRAM DAILY; EVERY MORNING TAPERED OVER TWO WEEKS , ONCE A DAY
     Route: 048
  3. CARBIMAZOLE [Suspect]
     Active Substance: CARBIMAZOLE
     Indication: Radiation thyroiditis
     Dosage: 30 MILLIGRAM DAILY; EVERY MORNING; RECEIVED PRIOR TO IODINE-131 ADMINISTRATION , ONCE A DAY
     Route: 065
  4. CARBIMAZOLE [Suspect]
     Active Substance: CARBIMAZOLE
     Indication: Graves^ disease
     Dosage: 30 MILLIGRAM DAILY; (LACK OF EFFICACY) , 15 MG TWICE A DAY
     Route: 065
  5. IODINE I-131 [Suspect]
     Active Substance: IODINE I-131
     Indication: Graves^ disease
     Dosage: 25 MILLICURIES , ADDITIONAL INFO: LATER, HE RECEIVED HIS SECOND DOSE 27 MCI.
     Route: 065

REACTIONS (4)
  - Radiation thyroiditis [Recovered/Resolved]
  - Hypothyroidism [Unknown]
  - Intentional product misuse [Unknown]
  - Drug ineffective [Unknown]
